FAERS Safety Report 9610599 (Version 1)
Quarter: 2013Q4

REPORT INFORMATION
  Report Type: Spontaneous
  Country: US (occurrence: US)
  Receive Date: 20131009
  Receipt Date: 20131009
  Transmission Date: 20140711
  Serious: Yes (Other)
  Sender: FDA-Public Use
  Company Number: CHPA2013US015234

PATIENT
  Age: 66 Year
  Sex: Female

DRUGS (5)
  1. PRIVATE LABEL [Suspect]
     Indication: SMOKING CESSATION THERAPY
     Dosage: 7 MG, UNK
     Route: 062
     Dates: start: 2012, end: 2012
  2. PRIVATE LABEL [Suspect]
     Dosage: 14 MG, UNK
     Route: 062
     Dates: start: 2012, end: 2012
  3. PRIVATE LABEL [Suspect]
     Dosage: 21 MG, UNK
     Route: 062
     Dates: start: 2012, end: 2012
  4. CVS [Suspect]
     Indication: SMOKING CESSATION THERAPY
     Dosage: 14 MG, UNK
     Route: 062
     Dates: start: 2013
  5. PRIVATE LABEL STRENGTH UNKNOWN [Suspect]
     Indication: SMOKING CESSATION THERAPY
     Dosage: UNK,UNK
     Route: 062

REACTIONS (5)
  - Anal haemorrhage [Unknown]
  - Feeling abnormal [Unknown]
  - Headache [Not Recovered/Not Resolved]
  - Insomnia [Not Recovered/Not Resolved]
  - Nightmare [Unknown]
